FAERS Safety Report 7192340-0 (Version None)
Quarter: 2010Q4

REPORT INFORMATION
  Report Type: 
  Country: None (occurrence: None)
  Receive Date: 20101223
  Receipt Date: 20100824
  Transmission Date: 20110411
  Serious: No
  Sender: FDA-Public Use
  Company Number: US-AMGEN-KDL433418

PATIENT

DRUGS (19)
  1. ENBREL [Suspect]
     Indication: PRODUCT USED FOR UNKNOWN INDICATION
     Dosage: 50 MG, QWK
     Route: 058
     Dates: start: 20060701
  2. ADALIMUMAB [Concomitant]
  3. CELECOXIB [Concomitant]
     Dosage: 50 MG, UNK
  4. LISINOPRIL [Concomitant]
     Dosage: 5 MG, UNK
  5. SUCRALFATE [Concomitant]
     Dosage: 1 G, UNK
  6. PAROXETINE HCL [Concomitant]
     Dosage: 10 MG, UNK
  7. METOPROLOL TARTRATE [Concomitant]
     Dosage: 25 MG, UNK
  8. ESOMEPRAZOLE MAGNESIUM [Concomitant]
     Dosage: 20 MG, UNK
  9. HYDROCHLOROTHIAZIDE [Concomitant]
     Dosage: 12.5 MG, UNK
  10. POTASSIUM CHLORIDE [Concomitant]
     Dosage: 10 MEQ, UNK
  11. CLOPIDOGREL BISULFATE [Concomitant]
     Dosage: 75 MG, UNK
  12. MEMANTINE HCL [Concomitant]
     Dosage: 5 MG, UNK
  13. ACIDOPHILUS [Concomitant]
     Dosage: UNK UNK, UNK
  14. ERGOCALCIFEROL [Concomitant]
     Dosage: 400 IU, UNK
  15. ACETYLSALICYLIC ACID [Concomitant]
     Dosage: 81 MG, UNK
  16. CALCIUM WITH VITAMIN D [Concomitant]
     Dosage: UNK UNK, UNK
  17. FOLIC ACID [Concomitant]
     Dosage: 200 A?G, UNK
  18. ACITRETIN [Concomitant]
     Dosage: 10 MG, UNK
  19. LOVAZA [Concomitant]
     Dosage: UNK UNK, UNK

REACTIONS (1)
  - DRUG INEFFECTIVE [None]
